FAERS Safety Report 24593317 (Version 5)
Quarter: 2025Q1

REPORT INFORMATION
  Report Type: Spontaneous
  Country: JP (occurrence: JP)
  Receive Date: 20241108
  Receipt Date: 20250206
  Transmission Date: 20250409
  Serious: No
  Sender: PFIZER
  Company Number: JP-PFIZER INC-PV202400143322

PATIENT

DRUGS (2)
  1. NGENLA [Suspect]
     Active Substance: SOMATROGON-GHLA
     Indication: Growth hormone deficiency
  2. NGENLA [Suspect]
     Active Substance: SOMATROGON-GHLA
     Indication: Dwarfism

REACTIONS (2)
  - Injection site pain [Unknown]
  - Patient-device incompatibility [Unknown]
